FAERS Safety Report 20712554 (Version 1)
Quarter: 2022Q2

REPORT INFORMATION
  Report Type: Spontaneous
  Country: FR (occurrence: FR)
  Receive Date: 20220415
  Receipt Date: 20220415
  Transmission Date: 20220720
  Serious: Yes (Hospitalization)
  Sender: FDA-Public Use
  Company Number: None

PATIENT
  Age: 56 Year
  Sex: Male
  Weight: 66 kg

DRUGS (2)
  1. QUETIAPINE [Suspect]
     Active Substance: QUETIAPINE
     Indication: Intentional overdose
     Dosage: 50 MG, UNIT DOSE: 25 DF, DURATION-1 DAYS
     Route: 048
     Dates: start: 20220226, end: 20220226
  2. ALPRAZOLAM [Suspect]
     Active Substance: ALPRAZOLAM
     Indication: Intentional overdose
     Dosage: 0.25 MG, UNIT DOSE: 84 DF, DURATION-1 DAYS
     Route: 048
     Dates: start: 20220226, end: 20220226

REACTIONS (2)
  - Coma [Recovered/Resolved]
  - Poisoning deliberate [Recovered/Resolved]

NARRATIVE: CASE EVENT DATE: 20220226
